FAERS Safety Report 5630965-1 (Version None)
Quarter: 2008Q1

REPORT INFORMATION
  Report Type: 
  Country: None (occurrence: None)
  Receive Date: 20080219
  Receipt Date: 20080206
  Transmission Date: 20080703
  Serious: Yes (Death)
  Sender: FDA-Public Use
  Company Number: AU-SANOFI-SYNTHELABO-A01200801310

PATIENT
  Age: 30 Year
  Sex: Female

DRUGS (2)
  1. STILNOX [Suspect]
     Indication: INSOMNIA
     Dosage: UNK
     Route: 065
  2. IMOVANE [Suspect]
     Indication: INSOMNIA
     Dosage: UNK
     Route: 065

REACTIONS (2)
  - FALL [None]
  - SOMNAMBULISM [None]
